FAERS Safety Report 4913082-5 (Version None)
Quarter: 2006Q1

REPORT INFORMATION
  Report Type: 
  Country: None (occurrence: None)
  Receive Date: 20060210
  Receipt Date: 20060201
  Transmission Date: 20060701
  Serious: Yes (Other)
  Sender: FDA-Public Use
  Company Number: 028-20785-06020065

PATIENT
  Age: 62 Year
  Sex: Male

DRUGS (5)
  1. THALOMID [Suspect]
     Indication: MULTIPLE MYELOMA
     Dosage: 400 MG, DAILY, ORAL
     Route: 048
     Dates: start: 20040701, end: 20041101
  2. THALOMID [Suspect]
     Indication: MULTIPLE MYELOMA
     Dosage: 400 MG, DAILY, ORAL
     Route: 048
     Dates: start: 20041102
  3. THALOMID [Suspect]
  4. THALOMID [Suspect]
  5. PREDNISONE TAB [Concomitant]

REACTIONS (3)
  - CHRONIC OBSTRUCTIVE PULMONARY DISEASE [None]
  - CONDITION AGGRAVATED [None]
  - SOMNOLENCE [None]
